FAERS Safety Report 17730074 (Version 1)
Quarter: 2020Q2

REPORT INFORMATION
  Report Type: Spontaneous
  Country: US (occurrence: US)
  Receive Date: 20200430
  Receipt Date: 20200430
  Transmission Date: 20200714
  Serious: Yes (Hospitalization, Other)
  Sender: FDA-Public Use
  Company Number: US-NAPPMUNDI-USA-2020-0152163

PATIENT
  Age: 57 Year
  Sex: Female

DRUGS (2)
  1. OXYCODONE HCL CR TABLETS (SIMILAR TO NDA 22-272) [Suspect]
     Active Substance: OXYCODONE HYDROCHLORIDE
     Dosage: 3 X 80 MG, PM
     Route: 048
     Dates: start: 2007, end: 20200415
  2. OXYCODONE HCL CR TABLETS (SIMILAR TO NDA 22-272) [Suspect]
     Active Substance: OXYCODONE HYDROCHLORIDE
     Indication: ROAD TRAFFIC ACCIDENT
     Dosage: 3 X 80 MG, AM
     Route: 048
     Dates: start: 2007, end: 20200415

REACTIONS (5)
  - Medical device implantation [Unknown]
  - Knee arthroplasty [Unknown]
  - Unevaluable event [Unknown]
  - Spinal operation [Unknown]
  - Migraine [Unknown]

NARRATIVE: CASE EVENT DATE: 2007
